FAERS Safety Report 17286611 (Version 1)
Quarter: 2020Q1

REPORT INFORMATION
  Report Type: Spontaneous
  Country: US (occurrence: US)
  Receive Date: 20200119
  Receipt Date: 20200119
  Transmission Date: 20200409
  Serious: No
  Sender: FDA-Public Use
  Company Number: US-009507513-2001USA003749

PATIENT
  Age: 72 Year
  Sex: Female

DRUGS (3)
  1. PROVENTIL [Suspect]
     Active Substance: ALBUTEROL
     Indication: WHEEZING
     Dosage: 1 PUFF EVERY 6 HOURS AS NEEDED
     Dates: start: 20191214, end: 20200108
  2. MUCINEX DM [Concomitant]
     Active Substance: DEXTROMETHORPHAN HYDROBROMIDE\GUAIFENESIN
  3. DELSYM [Concomitant]
     Active Substance: DEXTROMETHORPHAN

REACTIONS (3)
  - Product quality issue [Unknown]
  - Product dose omission [Unknown]
  - Poor quality device used [Unknown]

NARRATIVE: CASE EVENT DATE: 20200108
